FAERS Safety Report 9678316 (Version 3)
Quarter: 2014Q2

REPORT INFORMATION
  Report Type: Spontaneous
  Country: US (occurrence: US)
  Receive Date: 20131108
  Receipt Date: 20140410
  Transmission Date: 20141212
  Serious: Yes (Other)
  Sender: FDA-Public Use
  Company Number: US-PFIZER INC-2013314733

PATIENT
  Age: 73 Year
  Sex: Male
  Weight: 74.83 kg

DRUGS (6)
  1. XALATAN [Suspect]
     Indication: GLAUCOMA
     Dosage: 1 GTT  RIGHT EYE, UNK
     Dates: start: 2012
  2. LOSARTAN [Suspect]
     Indication: HYPERTENSION
     Dosage: 100 MG, UNK
  3. HYDROCHLOROTHIAZIDE [Suspect]
     Indication: HYPERTENSION
     Dosage: 25 MG, UNK
  4. LATANOPROST [Suspect]
     Indication: GLAUCOMA
     Dosage: 1 GTT IN RIGHT EYE, UNK
     Dates: start: 20131104
  5. HYDRAN [Suspect]
     Indication: HYPERTENSION
     Dosage: 5 MG, UNK
  6. LATANOPROST [Suspect]
     Dosage: UNK

REACTIONS (5)
  - Visual acuity reduced [Unknown]
  - Vision blurred [Unknown]
  - Hyperhidrosis [Unknown]
  - Eye irritation [Unknown]
  - Dry eye [Unknown]
